FAERS Safety Report 8762038 (Version 2)
Quarter: 2012Q4

REPORT INFORMATION
  Report Type: 
  Country: US (occurrence: US)
  Receive Date: 20120830
  Receipt Date: 20121226
  Transmission Date: 20130627
  Serious: No
  Sender: FDA-Public Use
  Company Number: US-PFIZER INC-2012211276

PATIENT
  Age: 64 Year
  Sex: Male
  Weight: 90.7 kg

DRUGS (7)
  1. XANAX XR [Suspect]
     Indication: PANIC DISORDER
     Dosage: 1 mg, 2x/day
     Route: 048
  2. XANAX XR [Suspect]
     Dosage: 1mg in the morning and 1.5mg in evening
  3. XANAX XR [Suspect]
     Dosage: 3 half tablets of 0.5mg (by splitting 1mg tablet)
     Route: 048
     Dates: start: 2012
  4. TOPROL XL [Suspect]
     Indication: BLOOD PRESSURE HIGH
     Dosage: 25 mg, daily
     Route: 048
  5. PROZAC [Concomitant]
     Indication: PANIC DISORDER
     Dosage: 10 mg, daily
  6. DIOVAN [Concomitant]
     Indication: BLOOD PRESSURE HIGH
     Dosage: 160 mg, daily
  7. HYDROXYUREA [Concomitant]
     Indication: POLYCYTHEMIA VERA
     Dosage: 500mg and 1000mg once in a day on alternative days

REACTIONS (4)
  - Wrong technique in drug usage process [Unknown]
  - Drug intolerance [Unknown]
  - Somnolence [Not Recovered/Not Resolved]
  - Heart rate decreased [Unknown]
